FAERS Safety Report 8193601-9 (Version None)
Quarter: 2012Q1

REPORT INFORMATION
  Report Type: 
  Country: None (occurrence: None)
  Receive Date: 20120308
  Receipt Date: 20120301
  Transmission Date: 20120608
  Serious: Yes (Other)
  Sender: FDA-Public Use
  Company Number: GB-PFIZER INC-2011196077

PATIENT
  Age: 67 Year
  Sex: Female

DRUGS (1)
  1. TOVIAZ [Suspect]
     Dosage: 4 MG, SINGLE
     Dates: start: 20110819

REACTIONS (4)
  - FATIGUE [None]
  - NAUSEA [None]
  - RASH [None]
  - RENAL FAILURE [None]
